FAERS Safety Report 7412215-9 (Version None)
Quarter: 2011Q2

REPORT INFORMATION
  Report Type: 
  Country: None (occurrence: None)
  Receive Date: 20110405
  Receipt Date: 20110323
  Transmission Date: 20111010
  Serious: Yes (Hospitalization)
  Sender: FDA-Public Use
  Company Number: KV200800377

PATIENT
  Age: 78 Year
  Sex: Male
  Weight: 74.8 kg

DRUGS (11)
  1. MORPHINE SULFATE [Suspect]
     Indication: BACK PAIN
     Dosage: 30 MG, TID, ORAL
     Route: 048
     Dates: start: 20081201, end: 20090923
  2. COUMADIN [Concomitant]
  3. COREG [Concomitant]
  4. MORPHINE SULFATE [Suspect]
     Indication: PAIN
     Dosage: 30 MG, TID PRN, ORAL, 30 MG, BID, ORAL
     Route: 048
     Dates: start: 20060213, end: 20081226
  5. MORPHINE SULFATE [Suspect]
     Indication: PAIN
     Dosage: 30 MG, TID PRN, ORAL, 30 MG, BID, ORAL
     Route: 048
     Dates: start: 20090126, end: 20090605
  6. ADVAIR HFA [Concomitant]
  7. RANEXA [Concomitant]
  8. LOPRESSOR [Concomitant]
  9. XANAX [Concomitant]
  10. AMITRIPTYLINE (AMITRIPTYLINE) [Concomitant]
  11. PERCOCET [Concomitant]

REACTIONS (22)
  - DYSPNOEA [None]
  - DIZZINESS [None]
  - CONSTIPATION [None]
  - SOMNOLENCE [None]
  - HYPOTENSION [None]
  - RETROPERITONEAL HAEMORRHAGE [None]
  - OXYGEN SATURATION DECREASED [None]
  - LETHARGY [None]
  - OVERDOSE [None]
  - BRADYARRHYTHMIA [None]
  - HYPOXIA [None]
  - NEPHROLITHIASIS [None]
  - INSOMNIA [None]
  - FATIGUE [None]
  - DEPRESSION [None]
  - ASTHENIA [None]
  - ANXIETY [None]
  - LISTLESS [None]
  - PRODUCT QUALITY ISSUE [None]
  - RENAL HAEMATOMA [None]
  - GENERAL PHYSICAL HEALTH DETERIORATION [None]
  - LUMBAR RADICULOPATHY [None]
